FAERS Safety Report 7357444-8 (Version None)
Quarter: 2011Q1

REPORT INFORMATION
  Report Type: 
  Country: None (occurrence: None)
  Receive Date: 20110317
  Receipt Date: 20110216
  Transmission Date: 20110831
  Serious: Yes (Hospitalization, Other)
  Sender: FDA-Public Use
  Company Number: US-BAYER-201042100NA

PATIENT
  Sex: Female
  Weight: 58.957 kg

DRUGS (7)
  1. YAZ [Suspect]
     Dosage: UNK
     Dates: start: 20060601, end: 20060701
  2. ALEVE-D SINUS + COLD [Concomitant]
     Dosage: UNK
  3. YASMIN [Suspect]
     Indication: CONTRACEPTION
     Dosage: UNK UNK, QD
     Route: 048
     Dates: start: 20020101, end: 20060701
  4. YASMIN [Suspect]
     Indication: PREMENSTRUAL SYNDROME
  5. CENTRUM [Concomitant]
     Indication: VITAMIN SUPPLEMENTATION
     Dosage: UNK UNK, QD
     Dates: start: 20031108
  6. UNCODEABLE ^UNCLASSIFIABLE^ [Concomitant]
     Indication: PAIN
     Dosage: UNK UNK, PRN
  7. UNCODEABLE ^UNCLASSIFIABLE^ [Concomitant]

REACTIONS (3)
  - CHOLELITHIASIS [None]
  - BILE DUCT STONE [None]
  - CHOLECYSTITIS [None]
